FAERS Safety Report 8642093 (Version 2)
Quarter: 2014Q1

REPORT INFORMATION
  Report Type: Spontaneous
  Country: US (occurrence: None)
  Receive Date: 20120323
  Receipt Date: 20130305
  Transmission Date: 20141002
  Serious: Yes (Disabling)
  Sender: FDA-Public Use
  Company Number: 163-21880-11100918

PATIENT
  Age: 86 Year
  Sex: Male

DRUGS (11)
  1. REVLIMID [Suspect]
     Indication: PLASMA CELL MYELOMA
     Dosage: PO 5 MG, THREE TIMES WEEKLY, PO
     Route: 048
     Dates: start: 20111005
  2. DEXAMETHASONE [Concomitant]
  3. CYMBALTA [Concomitant]
  4. TOPROL XL [Concomitant]
  5. OMEPRAZOLE [Concomitant]
  6. ZOCOR (SIMVASTATIN) (UNKNOWN) [Concomitant]
  7. NAMENDA (MEMANTINE HYDROCHLORIDE) [Concomitant]
  8. ASPIRIN [Concomitant]
  9. TERAZOSIN (TERAZOSIN) (UNKNOWN) [Concomitant]
  10. GABAPENTIN [Concomitant]
  11. NEURONTIN [Concomitant]

REACTIONS (4)
  - Neuropathy peripheral [None]
  - Lethargy [None]
  - Fatigue [None]
  - Renal impairment [None]
